FAERS Safety Report 5042415-7 (Version None)
Quarter: 2006Q2

REPORT INFORMATION
  Report Type: 
  Country: None (occurrence: None)
  Receive Date: 20060601
  Receipt Date: 20060331
  Transmission Date: 20061013
  Serious: No
  Sender: FDA-Public Use
  Company Number: 2006PV011345

PATIENT
  Age: 61 Year
  Sex: Female
  Weight: 73.4827 kg

DRUGS (12)
  1. BYETTA [Suspect]
     Indication: DIABETES MELLITUS NON-INSULIN-DEPENDENT
     Dosage: SEE IMAGE
     Route: 058
     Dates: start: 20051201, end: 20060101
  2. BYETTA [Suspect]
     Indication: DIABETES MELLITUS NON-INSULIN-DEPENDENT
     Dosage: SEE IMAGE
     Route: 058
     Dates: start: 20060101, end: 20060201
  3. LIPITOR [Concomitant]
  4. LOPRESSOR [Concomitant]
  5. NORVASC [Concomitant]
  6. PROTONIX [Concomitant]
  7. PREMARIN [Concomitant]
  8. GLUCOPHAGE XR [Concomitant]
  9. FULL SPECTRUM CINNAMON 375 MG CAPS [Concomitant]
  10. GLUCOPHAGE XR [Concomitant]
  11. GLUCOTROL [Concomitant]
  12. AVANDIA [Concomitant]

REACTIONS (8)
  - ABDOMINAL DISTENSION [None]
  - CONDITION AGGRAVATED [None]
  - FEELING JITTERY [None]
  - HEADACHE [None]
  - INSOMNIA [None]
  - NAUSEA [None]
  - VENTRICULAR EXTRASYSTOLES [None]
  - WEIGHT DECREASED [None]
